FAERS Safety Report 9178759 (Version 1)
Quarter: 2012Q4

REPORT INFORMATION
  Report Type: 
  Country: AU (occurrence: AU)
  Receive Date: 20121029
  Receipt Date: 20121029
  Transmission Date: 20130627
  Serious: Yes (Other)
  Sender: FDA-Public Use
  Company Number: PHHY2012AU096665

PATIENT
  Age: 93 None
  Sex: Male

DRUGS (2)
  1. ACLASTA [Suspect]
     Dosage: 5 mg, UNK
     Route: 042
     Dates: start: 20100913
  2. ACLASTA [Suspect]
     Dosage: 5 mg, UNK
     Route: 042
     Dates: start: 20110920

REACTIONS (10)
  - Haemolysis [Unknown]
  - Blood potassium increased [Unknown]
  - Blood 25-hydroxycholecalciferol increased [Unknown]
  - Blood bicarbonate decreased [Unknown]
  - Blood cholesterol decreased [Unknown]
  - Blood bilirubin decreased [Unknown]
  - Blood lactate dehydrogenase increased [Unknown]
  - Glomerular filtration rate decreased [Unknown]
  - Blood urea increased [Unknown]
  - Blood creatinine increased [Unknown]
